FAERS Safety Report 10799031 (Version 1)
Quarter: 2015Q1

REPORT INFORMATION
  Report Type: Spontaneous
  Country: US (occurrence: US)
  Receive Date: 20150216
  Receipt Date: 20150216
  Transmission Date: 20150721
  Serious: No
  Sender: FDA-Public Use
  Company Number: US-ALLERGAN-1404221US

PATIENT
  Age: 64 Year
  Sex: Female

DRUGS (4)
  1. REFRESH WITH PRESERVATIVE NOS [Concomitant]
     Indication: DRY EYE
  2. RESTASIS [Suspect]
     Active Substance: CYCLOSPORINE
     Indication: DRY EYE
     Dosage: 2 GTT, BID
     Route: 047
     Dates: start: 20140225, end: 20140301
  3. LIPITOR [Concomitant]
     Active Substance: ATORVASTATIN CALCIUM
     Indication: BLOOD CHOLESTEROL INCREASED
     Dosage: 10 MG, UNK
     Route: 048
  4. REFRESH WITHOUT PRESERVATIVE NOS [Concomitant]
     Indication: DRY EYE

REACTIONS (8)
  - Erythema of eyelid [Unknown]
  - Lacrimation increased [Unknown]
  - Skin induration [Unknown]
  - Eye pain [Unknown]
  - Foreign body sensation in eyes [Unknown]
  - Eye discharge [Unknown]
  - Eyelid oedema [Unknown]
  - Eyelid margin crusting [Unknown]
